APPROVED DRUG PRODUCT: PITAVASTATIN CALCIUM
Active Ingredient: PITAVASTATIN CALCIUM
Strength: EQ 4MG BASE
Dosage Form/Route: TABLET;ORAL
Application: A205932 | Product #003 | TE Code: AB
Applicant: ORIENT PHARMA CO LTD
Approved: Feb 3, 2017 | RLD: No | RS: No | Type: RX